FAERS Safety Report 6520021-2 (Version None)
Quarter: 2009Q4

REPORT INFORMATION
  Report Type: 
  Country: None (occurrence: None)
  Receive Date: 20091229
  Receipt Date: 20091223
  Transmission Date: 20100525
  Serious: Yes (Other)
  Sender: FDA-Public Use
  Company Number: IE-ROCHE-664673

PATIENT
  Sex: Male
  Weight: 75 kg

DRUGS (2)
  1. ROACCUTANE [Suspect]
     Indication: ACNE
     Route: 048
  2. ROACCUTANE [Suspect]
     Route: 048
     Dates: start: 20090808

REACTIONS (1)
  - GASTROINTESTINAL HAEMORRHAGE [None]
